FAERS Safety Report 18177105 (Version 1)
Quarter: 2020Q3

REPORT INFORMATION
  Report Type: Report from Study
  Country: US (occurrence: US)
  Receive Date: 20200820
  Receipt Date: 20200820
  Transmission Date: 20201103
  Serious: Yes (Hospitalization, Other)
  Sender: FDA-Public Use
  Company Number: US-TEVA-2020-US-1817304

PATIENT
  Age: 63 Year
  Sex: Male
  Weight: 74 kg

DRUGS (21)
  1. TYLENOL [Concomitant]
     Active Substance: ACETAMINOPHEN
     Dates: start: 20170307
  2. BACITRACIN. [Concomitant]
     Active Substance: BACITRACIN
  3. SODIUM BICARBONATE;SODIUM CHLORIDE [Concomitant]
     Dates: start: 20170215
  4. ZOLPIDEM TARTRATE. [Concomitant]
     Active Substance: ZOLPIDEM TARTRATE
     Dates: start: 20160219
  5. ULTRAM [Concomitant]
     Active Substance: TRAMADOL HYDROCHLORIDE
     Dates: start: 20170306
  6. BACTROBAN [Concomitant]
     Active Substance: MUPIROCIN\MUPIROCIN CALCIUM
     Dates: start: 20170307
  7. FILGRASTIM [Concomitant]
     Active Substance: FILGRASTIM
     Dates: start: 20170303
  8. ZOSYN [Concomitant]
     Active Substance: PIPERACILLIN SODIUM\TAZOBACTAM SODIUM
  9. BENADRYL [Concomitant]
     Active Substance: DIPHENHYDRAMINE HYDROCHLORIDE
  10. IDARUBICIN [Suspect]
     Active Substance: IDARUBICIN
     Indication: ACUTE MYELOID LEUKAEMIA
     Dosage: 12 MG/M2, ONCE DAILY
     Route: 042
     Dates: start: 20170209, end: 20170211
  11. ASP2215 [Suspect]
     Active Substance: GILTERITINIB
     Indication: ACUTE MYELOID LEUKAEMIA
     Route: 048
     Dates: start: 20170212
  12. MIRALAX [Concomitant]
     Active Substance: POLYETHYLENE GLYCOL 3350
     Dates: start: 20170208
  13. VANCOCIN [Concomitant]
     Active Substance: VANCOMYCIN HYDROCHLORIDE
     Dates: start: 20170223
  14. LIDOCAINE HCL [Concomitant]
     Active Substance: LIDOCAINE HYDROCHLORIDE
     Dates: start: 20170307
  15. SODIUM CHLORIDE. [Concomitant]
     Active Substance: SODIUM CHLORIDE
     Dates: start: 20170208
  16. LEVAQUIN [Concomitant]
     Active Substance: LEVOFLOXACIN
  17. CYTARABINE. [Suspect]
     Active Substance: CYTARABINE
     Indication: ACUTE MYELOID LEUKAEMIA
     Dosage: 100 MG/M2, ONCE DAILY
     Route: 042
     Dates: start: 20170209, end: 20170215
  18. NOXAFIL [Concomitant]
     Active Substance: POSACONAZOLE
     Dates: start: 20170306
  19. ACYCLOVIR. [Concomitant]
     Active Substance: ACYCLOVIR
  20. PROTONIX [Concomitant]
     Active Substance: PANTOPRAZOLE SODIUM
     Dates: start: 20170209
  21. HEPARIN [Concomitant]
     Active Substance: HEPARIN SODIUM
     Dates: start: 20170307

REACTIONS (3)
  - Sepsis [Recovered/Resolved]
  - Febrile neutropenia [Recovered/Resolved]
  - Hypotension [Recovered/Resolved]

NARRATIVE: CASE EVENT DATE: 20170214
